FAERS Safety Report 14897684 (Version 1)
Quarter: 2018Q2

REPORT INFORMATION
  Report Type: Spontaneous
  Country: US (occurrence: US)
  Receive Date: 20180427
  Receipt Date: 20180427
  Transmission Date: 20180711
  Serious: No
  Sender: FDA-Public Use
  Company Number: None

PATIENT
  Age: 53 Year
  Sex: Female
  Weight: 56.25 kg

DRUGS (3)
  1. LITHIUM CARBONATE CAPSULES [Suspect]
     Active Substance: LITHIUM CARBONATE
     Indication: DRUG THERAPY
     Route: 048
     Dates: start: 20180422, end: 20180427
  2. ZOLOFT [Concomitant]
     Active Substance: SERTRALINE HYDROCHLORIDE
  3. CLONAZEPAM. [Concomitant]
     Active Substance: CLONAZEPAM

REACTIONS (8)
  - Fatigue [None]
  - Anhedonia [None]
  - Agitation [None]
  - Dizziness [None]
  - Product substitution issue [None]
  - Abdominal discomfort [None]
  - Disturbance in attention [None]
  - Confusional state [None]

NARRATIVE: CASE EVENT DATE: 20180427
